FAERS Safety Report 19580995 (Version 1)
Quarter: 2021Q3

REPORT INFORMATION
  Report Type: Spontaneous
  Country: US (occurrence: US)
  Receive Date: 20210719
  Receipt Date: 20210719
  Transmission Date: 20211014
  Serious: Yes (Hospitalization)
  Sender: FDA-Public Use
  Company Number: None

PATIENT
  Age: 72 Year
  Sex: Male
  Weight: 72.9 kg

DRUGS (11)
  1. FLUTICASONA [Concomitant]
     Active Substance: FLUTICASONE PROPIONATE
  2. POST OP [Concomitant]
  3. TYLENOL [Concomitant]
     Active Substance: ACETAMINOPHEN
  4. PRAVASTATINE [Concomitant]
     Active Substance: PRAVASTATIN
  5. ELEQUINE (LEVOFLOXACIN) [Suspect]
     Active Substance: LEVOFLOXACIN
     Indication: ACUTE SINUSITIS
     Dosage: ?          QUANTITY:7 TABLET(S);?
     Route: 048
     Dates: start: 20210619, end: 20210630
  6. CELEBREX [Concomitant]
     Active Substance: CELECOXIB
  7. AVALIDE [Concomitant]
     Active Substance: HYDROCHLOROTHIAZIDE\IRBESARTAN
  8. AYTUGRE NS [Concomitant]
  9. XARELTO [Concomitant]
     Active Substance: RIVAROXABAN
  10. KAFLEX [Concomitant]
  11. SYMBICORT [Concomitant]
     Active Substance: BUDESONIDE\FORMOTEROL FUMARATE DIHYDRATE

REACTIONS (3)
  - Pain in extremity [None]
  - Fall [None]
  - Tendon rupture [None]

NARRATIVE: CASE EVENT DATE: 20210626
